FAERS Safety Report 5132707-5 (Version None)
Quarter: 2006Q4

REPORT INFORMATION
  Report Type: 
  Country: None (occurrence: None)
  Receive Date: 20061023
  Receipt Date: 20061017
  Transmission Date: 20070319
  Serious: Yes (Other)
  Sender: FDA-Public Use
  Company Number: US-GLAXOSMITHKLINE-A0624064A

PATIENT
  Sex: Female

DRUGS (5)
  1. ADVAIR HFA [Suspect]
     Indication: CHRONIC OBSTRUCTIVE PULMONARY DISEASE
     Route: 055
  2. FLU VACCINE [Suspect]
     Indication: PROPHYLAXIS
     Route: 065
     Dates: start: 20060901, end: 20060901
  3. SOLU-MEDROL [Concomitant]
  4. PREDNISONE TAB [Concomitant]
  5. ANTIBIOTIC [Concomitant]

REACTIONS (4)
  - ASTHMA [None]
  - COUGH [None]
  - ILL-DEFINED DISORDER [None]
  - WHEEZING [None]
